FAERS Safety Report 10033115 (Version 1)
Quarter: 2014Q1

REPORT INFORMATION
  Report Type: Report from Study
  Country: US (occurrence: US)
  Receive Date: 20140324
  Receipt Date: 20140324
  Transmission Date: 20141002
  Serious: Yes (Other)
  Sender: FDA-Public Use
  Company Number: US-ABBVIE-14P-163-1213255-00

PATIENT
  Age: 63 Year
  Sex: Female
  Weight: 58.11 kg

DRUGS (8)
  1. HUMIRA [Suspect]
     Indication: CROHN^S DISEASE
     Dates: start: 201207, end: 201207
  2. HUMIRA [Suspect]
     Dosage: TWO WEEKS AFTER 160 MG DOSE
     Dates: start: 2012, end: 2012
  3. HUMIRA [Suspect]
     Dosage: FOUR WEEKS AFTER 160 MG DOSE
     Dates: start: 2012
  4. AZATHIOPRINE [Concomitant]
     Indication: CROHN^S DISEASE
  5. BUPROPION [Concomitant]
     Indication: DEPRESSION
  6. AMBIEN [Concomitant]
     Indication: INSOMNIA
  7. ZANTAC [Concomitant]
     Indication: GASTROOESOPHAGEAL REFLUX DISEASE
  8. VITAMINS [Concomitant]
     Indication: VITAMIN SUPPLEMENTATION

REACTIONS (5)
  - Dysplasia [Unknown]
  - Polyp [Not Recovered/Not Resolved]
  - Surgical failure [Recovered/Resolved]
  - Spinal operation [Recovered/Resolved]
  - Blood iron decreased [Unknown]
